FAERS Safety Report 8548154 (Version 4)
Quarter: 2013Q2

REPORT INFORMATION
  Report Type: Report from Study
  Country: JP (occurrence: JP)
  Receive Date: 20120507
  Receipt Date: 20130528
  Transmission Date: 20140414
  Serious: Yes (Other)
  Sender: FDA-Public Use
  Company Number: JP-VERTEX PHARMACEUTICALS INC.-AE-2012-006225

PATIENT
  Age: 60 Year
  Sex: Female

DRUGS (18)
  1. VX-950 (TELAPREVIR) [Suspect]
     Indication: CHRONIC HEPATITIS C
     Dosage: 1500 MG, QD
     Route: 048
     Dates: start: 20120308
  2. REBETOL [Suspect]
     Indication: CHRONIC HEPATITIS C
     Dosage: 600 MG, QD
     Route: 048
     Dates: start: 20120308, end: 20120308
  3. REBETOL [Suspect]
     Dosage: 400 MG, QD
     Route: 048
     Dates: start: 20120309, end: 20120425
  4. REBETOL [Suspect]
     Dosage: 200 MG, QD
     Route: 048
     Dates: start: 20120426
  5. PEGINTRON [Suspect]
     Indication: CHRONIC HEPATITIS C
     Dosage: 1.5 ?G/KG, QW
     Route: 058
     Dates: start: 20120308, end: 20120329
  6. PEGINTRON [Suspect]
     Dosage: 0.75 ?G/KG, QW
     Route: 058
     Dates: start: 20120405
  7. PREDNISOLONE [Suspect]
     Indication: RASH
     Dosage: 15 MG, QD
     Route: 048
     Dates: start: 20120311
  8. PREDNISOLONE [Suspect]
     Dosage: 45 MG, QD
     Route: 048
     Dates: start: 20120312, end: 20120314
  9. PREDNISOLONE [Suspect]
     Dosage: 30 MG, QD
     Route: 048
     Dates: start: 20120315, end: 20120321
  10. PREDNISOLONE [Suspect]
     Dosage: 25 MG, QD
     Route: 048
     Dates: start: 20120323, end: 20120329
  11. PREDNISOLONE [Suspect]
     Dosage: 20 MG, QD
     Route: 048
     Dates: start: 20120329, end: 20120406
  12. PREDNISOLONE [Suspect]
     Dosage: 15 MG, QD
     Route: 048
     Dates: start: 20120406, end: 20120425
  13. PREDONINE [Suspect]
     Dosage: UNK
     Route: 048
  14. DOGMATYL [Concomitant]
     Dosage: 150 MG, QD
     Route: 048
     Dates: start: 20120308, end: 20120314
  15. SELBEX [Concomitant]
     Dosage: 150 MG, QD
     Route: 048
     Dates: start: 20120308, end: 20120425
  16. ZYRTEC [Concomitant]
     Dosage: 10 MG, QD
     Route: 048
     Dates: start: 20120308, end: 20120314
  17. LOXONIN [Concomitant]
     Dosage: 60MG/DAY, AS NEEDED
     Route: 048
     Dates: start: 20120308
  18. TOPSYM [Concomitant]
     Dosage: 5 G,
     Route: 061
     Dates: start: 20120308

REACTIONS (1)
  - Mania [Recovered/Resolved]
